FAERS Safety Report 21161194 (Version 1)
Quarter: 2022Q3

REPORT INFORMATION
  Report Type: Report from Study
  Country: IT (occurrence: IT)
  Receive Date: 20220802
  Receipt Date: 20220802
  Transmission Date: 20221027
  Serious: Yes (Other)
  Sender: FDA-Public Use
  Company Number: None

PATIENT
  Age: 56 Year
  Sex: Female
  Weight: 69 kg

DRUGS (8)
  1. CISPLATIN [Suspect]
     Active Substance: CISPLATIN
     Indication: Product used for unknown indication
     Dosage: 170 MG / CYCLIC, CISPLATINO , UNIT DOSE : 170 MG , DURATION : 42 DAYS
     Dates: start: 20220525, end: 20220706
  2. MANNITOL [Concomitant]
     Active Substance: MANNITOL
     Indication: Product used for unknown indication
     Dosage: 18-20% 60 ML I.V. IN SLOW / CYCLIC BOLUS,MANNITOLO , DURATION : 42 DAYS
     Dates: start: 20220525, end: 20220706
  3. DEXAMETHASONE [Concomitant]
     Active Substance: DEXAMETHASONE
     Indication: Product used for unknown indication
     Dosage: 12 MG IN 5% GLUCOSE 500 ML / CYCLE,DESAMETASONE , DURATION : 42 DAYS
     Dates: start: 20220525, end: 20220706
  4. OMEPRAZOLE [Concomitant]
     Active Substance: OMEPRAZOLE
     Indication: Product used for unknown indication
     Dosage: 20 MILLIGRAM DAILY; 20 MG / DAY,OMEPRAZOLO
  5. XANAX [Concomitant]
     Active Substance: ALPRAZOLAM
     Indication: Product used for unknown indication
     Dosage: 8 GTT DAILY; 8 DROPS / DAY
  6. DELORAZEPAM [Concomitant]
     Active Substance: DELORAZEPAM
     Indication: Product used for unknown indication
     Dosage: 8 GTT DAILY; 8 DROPS / DAY
  7. PREDNISONE [Concomitant]
     Active Substance: PREDNISONE
     Indication: Product used for unknown indication
     Dosage: 25 MILLIGRAM DAILY; 25 MG / DAY FOR 4 DAYS AFTER THE CHEMOTHERAPY SESSION.
     Dates: start: 19700101
  8. DIFLUCAN [Concomitant]
     Active Substance: FLUCONAZOLE
     Indication: Product used for unknown indication
     Dosage: 100 MILLIGRAM DAILY; 100 MG / DAY FOR 10 DAYS AFTER THE CHEMOTHERAPY SESSION

REACTIONS (1)
  - Stomatitis [Unknown]

NARRATIVE: CASE EVENT DATE: 20220706
